FAERS Safety Report 25245480 (Version 1)
Quarter: 2025Q2

REPORT INFORMATION
  Report Type: Spontaneous
  Country: JP (occurrence: JP)
  Receive Date: 20250428
  Receipt Date: 20250428
  Transmission Date: 20250717
  Serious: Yes (Hospitalization, Other)
  Sender: BRACCO
  Company Number: JP-BAYER-2025A055476

PATIENT
  Age: 7 Decade
  Sex: Female

DRUGS (2)
  1. IOPAMIRON [Suspect]
     Active Substance: IOPAMIDOL
     Indication: Diagnostic procedure
  2. ETHANOLAMINE OLEATE [Suspect]
     Active Substance: ETHANOLAMINE OLEATE
     Indication: Balloon-occluded retrograde transvenous obliteration

REACTIONS (3)
  - Off label use [Recovered/Resolved]
  - Spinal subarachnoid haemorrhage [Recovered/Resolved]
  - Spinal subdural haematoma [Recovered/Resolved]
